FAERS Safety Report 6480951-7 (Version None)
Quarter: 2009Q4

REPORT INFORMATION
  Report Type: 
  Country: None (occurrence: None)
  Receive Date: 20091208
  Receipt Date: 20091124
  Transmission Date: 20100525
  Serious: Yes (Other)
  Sender: FDA-Public Use
  Company Number: GB-MYLANLABS-2009S1020409

PATIENT
  Age: 58 Year
  Sex: Male
  Weight: 83.2 kg

DRUGS (8)
  1. OMEPRAZOLE [Suspect]
     Indication: DYSPEPSIA
     Route: 048
     Dates: start: 20060619, end: 20060619
  2. ZOPICLONE [Suspect]
     Indication: INSOMNIA
     Route: 048
     Dates: start: 20060401
  3. AMITRIPTYLINE [Suspect]
     Indication: DEPRESSION
     Route: 048
  4. DEXAMETHASONE TAB [Suspect]
     Indication: LYMPHOMA
     Route: 048
     Dates: start: 20060401
  5. MABTHERA [Suspect]
     Indication: LYMPHOMA
     Route: 042
     Dates: start: 20060619, end: 20060619
  6. VFEND [Suspect]
     Indication: ASPERGILLOSIS
     Dates: start: 20060401
  7. VFEND [Suspect]
     Dates: start: 20060707, end: 20060709
  8. VFEND [Suspect]
     Dates: start: 20060710

REACTIONS (6)
  - AGITATION [None]
  - AMNESIA [None]
  - BEDRIDDEN [None]
  - CHILLS [None]
  - CONFUSIONAL STATE [None]
  - FEELING ABNORMAL [None]
